FAERS Safety Report 11840357 (Version 1)
Quarter: 2015Q4

REPORT INFORMATION
  Report Type: Spontaneous
  Country: US (occurrence: US)
  Receive Date: 20151216
  Receipt Date: 20151216
  Transmission Date: 20160305
  Serious: Yes (Other)
  Sender: FDA-Public Use
  Company Number: US-THE MENTHOLATUM COMPANY-1045549

PATIENT
  Sex: Male

DRUGS (1)
  1. ROHTO ICE [Suspect]
     Active Substance: HYPROMELLOSES\TETRAHYDROZOLINE HYDROCHLORIDE\ZINC SULFATE
     Route: 047

REACTIONS (1)
  - Eye irritation [Unknown]
